FAERS Safety Report 13720318 (Version 1)
Quarter: 2017Q3

REPORT INFORMATION
  Report Type: Other
  Country: DE (occurrence: DE)
  Receive Date: 20170706
  Receipt Date: 20170706
  Transmission Date: 20171127
  Serious: No
  Sender: FDA-Public Use
  Company Number: DE-LUPIN PHARMACEUTICALS INC.-E2B_00007240

PATIENT
  Sex: Male
  Weight: 100 kg

DRUGS (4)
  1. FIBRATE (FENOFIBRATE) [Suspect]
     Active Substance: FENOFIBRATE
     Indication: PRODUCT USED FOR UNKNOWN INDICATION
     Dosage: 200 MG,UNK,
     Route: 048
     Dates: start: 2013, end: 2016
  2. ATORVASTATIN [Suspect]
     Active Substance: ATORVASTATIN
     Dosage: 20 MG,UNK,UNKNOWN
     Route: 048
     Dates: start: 2013
  3. SIMVASTATIN. [Suspect]
     Active Substance: SIMVASTATIN
     Indication: PRODUCT USED FOR UNKNOWN INDICATION
     Dosage: 20 MG,UNK,UNKNOWN
     Route: 048
     Dates: start: 2013, end: 2016
  4. EZETIMIB+ATORVASTATIN [Suspect]
     Active Substance: ATORVASTATIN\EZETIMIBE
     Indication: PRODUCT USED FOR UNKNOWN INDICATION
     Dosage: UNK UNK,UNK,UNKNOWN
     Route: 048
     Dates: start: 2013, end: 2016

REACTIONS (5)
  - Sleep disorder [Recovering/Resolving]
  - Palpitations [Recovering/Resolving]
  - Myalgia [Recovering/Resolving]
  - Rash [Recovering/Resolving]
  - Hot flush [Recovering/Resolving]
